FAERS Safety Report 24121287 (Version 1)
Quarter: 2024Q3

REPORT INFORMATION
  Report Type: Spontaneous
  Country: US (occurrence: US)
  Receive Date: 20240722
  Receipt Date: 20240722
  Transmission Date: 20241017
  Serious: No
  Sender: CALLIDITAS THERAPEUTICS
  Company Number: US-Calliditas-2024CAL01284

PATIENT
  Age: 51 Year
  Sex: Male
  Weight: 106 kg

DRUGS (1)
  1. TARPEYO [Suspect]
     Active Substance: BUDESONIDE
     Indication: IgA nephropathy
     Route: 048
     Dates: start: 20231031

REACTIONS (4)
  - Contusion [Unknown]
  - Skin haemorrhage [Unknown]
  - Macule [Unknown]
  - Sensitive skin [Unknown]
